FAERS Safety Report 24694495 (Version 1)
Quarter: 2024Q4

REPORT INFORMATION
  Report Type: Report from Study
  Country: US (occurrence: US)
  Receive Date: 20241204
  Receipt Date: 20241204
  Transmission Date: 20250115
  Serious: Yes (Other)
  Sender: JOHNSON AND JOHNSON
  Company Number: US-ABBVIE-5790482

PATIENT
  Sex: Male

DRUGS (1)
  1. IMBRUVICA [Suspect]
     Active Substance: IBRUTINIB
     Indication: Mantle cell lymphoma
     Route: 048
     Dates: start: 20230208

REACTIONS (4)
  - Increased tendency to bruise [Unknown]
  - Skin atrophy [Unknown]
  - Nephrolithiasis [Recovered/Resolved]
  - Skin laceration [Recovering/Resolving]
